FAERS Safety Report 8167966-8 (Version None)
Quarter: 2012Q1

REPORT INFORMATION
  Report Type: 
  Country: None (occurrence: None)
  Receive Date: 20120227
  Receipt Date: 20120123
  Transmission Date: 20120608
  Serious: Yes (Hospitalization)
  Sender: FDA-Public Use
  Company Number: DE-GLAXOSMITHKLINE-B0769764B

PATIENT
  Sex: Female
  Weight: 64.5 kg

DRUGS (4)
  1. ALOXI [Concomitant]
     Indication: VOMITING
     Dosage: 250UG PER DAY
     Route: 042
     Dates: start: 20120102, end: 20120105
  2. TOPOTECAN [Suspect]
     Indication: OVARIAN CANCER RECURRENT
     Dosage: 2.05MG PER DAY
     Route: 042
     Dates: start: 20111128
  3. EMEND [Concomitant]
     Indication: VOMITING
     Route: 048
     Dates: start: 20120202, end: 20120204
  4. BLINDED TRIAL MEDICATION [Suspect]
     Indication: OVARIAN CANCER RECURRENT
     Route: 048
     Dates: start: 20111203

REACTIONS (2)
  - ANAEMIA [None]
  - GASTRITIS [None]
